FAERS Safety Report 9849014 (Version 2)
Quarter: 2014Q1

REPORT INFORMATION
  Report Type: Spontaneous
  Country: US (occurrence: None)
  Receive Date: 20140122
  Receipt Date: 20140127
  Transmission Date: 20141002
  Serious: Yes (Death)
  Sender: FDA-Public Use
  Company Number: SYM-2014-14822

PATIENT
  Age: 60 Year
  Sex: Male

DRUGS (5)
  1. DILTIAZEM (DILTIAZEM) (DILTIAZEM) [Suspect]
     Indication: PRODUCT USED FOR UNKNOWN INDICATION
     Route: 048
  2. METOPROLOL (METOPROLOL) [Suspect]
     Indication: PRODUCT USED FOR UNKNOWN INDICATION
     Route: 048
  3. AMIODARONE HYDROCHLORIDE (AMIODARONE HYDOCHLORIDE) [Suspect]
     Indication: PRODUCT USED FOR UNKNOWN INDICATION
     Route: 048
  4. WARFARIN SODIUM (WARFARIN SODIUM) [Suspect]
     Indication: PRODUCT USED FOR UNKNOWN INDICATION
     Route: 048
  5. DIGOXIN (DIGOXIN) [Suspect]
     Indication: PRODUCT USED FOR UNKNOWN INDICATION
     Route: 048

REACTIONS (3)
  - Adverse drug reaction [None]
  - Poisoning [None]
  - Drug hypersensitivity [None]
